FAERS Safety Report 25802807 (Version 1)
Quarter: 2025Q3

REPORT INFORMATION
  Report Type: Spontaneous
  Country: EU (occurrence: EU)
  Receive Date: 20250915
  Receipt Date: 20250915
  Transmission Date: 20251020
  Serious: Yes (Other)
  Sender: BAYER HEALTHCARE PHARMACEUTICALS INC.
  Company Number: EU-BAYER-2025A121304

PATIENT
  Age: 71 Year
  Sex: Female

DRUGS (5)
  1. FINERENONE [Suspect]
     Active Substance: FINERENONE
     Indication: Diabetic nephropathy
     Dosage: 10 MG, QD
  2. FINERENONE [Suspect]
     Active Substance: FINERENONE
     Indication: Diabetic nephropathy
     Dosage: 20 MG, QD
  3. LINAGLIPTIN [Concomitant]
     Active Substance: LINAGLIPTIN
  4. LANTUS [Concomitant]
     Active Substance: INSULIN GLARGINE
  5. EMPAGLIFLOZIN [Concomitant]
     Active Substance: EMPAGLIFLOZIN

REACTIONS (1)
  - Non-Hodgkin^s lymphoma [None]
